FAERS Safety Report 4539826-2 (Version None)
Quarter: 2004Q4

REPORT INFORMATION
  Report Type: 
  Country: None (occurrence: None)
  Receive Date: 20041222
  Receipt Date: 20041206
  Transmission Date: 20050328
  Serious: Yes (Other)
  Sender: FDA-Public Use
  Company Number: US_0412108897

PATIENT
  Age: 51 Year
  Sex: Male

DRUGS (1)
  1. CEPHALEXIN [Suspect]
     Indication: POSTOPERATIVE INFECTION
     Dosage: 500 MG/3 DAY

REACTIONS (1)
  - HEPATITIS CHOLESTATIC [None]
